FAERS Safety Report 23745707 (Version 1)
Quarter: 2024Q2

REPORT INFORMATION
  Report Type: Spontaneous
  Country: TR (occurrence: TR)
  Receive Date: 20240416
  Receipt Date: 20240416
  Transmission Date: 20240716
  Serious: Yes (Hospitalization)
  Sender: FDA-Public Use
  Company Number: TR-HALEON-TRCH2024015958

PATIENT
  Age: 38 Year
  Sex: Male

DRUGS (1)
  1. SENSODYNE [Suspect]
     Active Substance: POTASSIUM NITRATE\SODIUM FLUORIDE
     Indication: Product used for unknown indication
     Dates: start: 20240322, end: 20240324

REACTIONS (11)
  - Pruritus [Recovering/Resolving]
  - Throat irritation [Recovering/Resolving]
  - Oral contusion [Recovering/Resolving]
  - Tongue discolouration [Recovering/Resolving]
  - Oral mucosal erythema [Recovering/Resolving]
  - Haemorrhage [Recovering/Resolving]
  - Gingival discomfort [Recovering/Resolving]
  - Erythema [Recovering/Resolving]
  - Blister [Recovering/Resolving]
  - Swelling [Recovering/Resolving]
  - Oral discomfort [Recovering/Resolving]

NARRATIVE: CASE EVENT DATE: 20240301
